FAERS Safety Report 18348326 (Version 2)
Quarter: 2020Q4

REPORT INFORMATION
  Report Type: Spontaneous
  Country: JP (occurrence: JP)
  Receive Date: 20201006
  Receipt Date: 20201009
  Transmission Date: 20210114
  Serious: Yes (Hospitalization, Other)
  Sender: FDA-Public Use
  Company Number: JP-ACCORD-204338

PATIENT
  Age: 48 Year
  Sex: Male

DRUGS (5)
  1. HALOPERIDOL. [Concomitant]
     Active Substance: HALOPERIDOL
     Indication: SCHIZOPHRENIA
  2. PALIPERIDONE/PALIPERIDONE PALMITATE [Concomitant]
     Active Substance: PALIPERIDONE
     Indication: SCHIZOPHRENIA
  3. CLOZAPINE. [Suspect]
     Active Substance: CLOZAPINE
     Indication: SCHIZOPHRENIA
     Dosage: INITIALLY 12.5 MG/DAY, INCREASED BY 12.5 OR 25 MG/D EVERY 6-7 DAYS
  4. LITHIUM. [Suspect]
     Active Substance: LITHIUM
     Indication: WHITE BLOOD CELL COUNT DECREASED
  5. LEVOMEPROMAZINE [Concomitant]
     Active Substance: LEVOMEPROMAZINE
     Indication: SCHIZOPHRENIA

REACTIONS (8)
  - Neutropenia [Recovered/Resolved]
  - White blood cell count decreased [Recovered/Resolved]
  - Rebound effect [Recovered/Resolved]
  - Pleural effusion [Unknown]
  - Hepatitis [Recovered/Resolved]
  - Bronchitis [Recovered/Resolved]
  - Eosinophilia [Recovered/Resolved]
  - Pericardial effusion [Unknown]
